FAERS Safety Report 5441866-6 (Version None)
Quarter: 2007Q3

REPORT INFORMATION
  Report Type: 
  Country: None (occurrence: None)
  Receive Date: 20070830
  Receipt Date: 20070830
  Transmission Date: 20080115
  Serious: Yes (Death)
  Sender: FDA-Public Use
  Company Number: None

PATIENT
  Age: 71 Year
  Sex: Female
  Weight: 90.7194 kg

DRUGS (6)
  1. ZYPREXA [Suspect]
     Indication: AGITATION
     Dosage: 2 TABLETS AT BEDTIME PO
     Route: 048
     Dates: start: 20070706, end: 20070716
  2. ZYPREXA [Suspect]
     Indication: HALLUCINATION
     Dosage: 2 TABLETS AT BEDTIME PO
     Route: 048
     Dates: start: 20070706, end: 20070716
  3. HALDOL [Suspect]
     Indication: AGITATION
     Dosage: 1 TAB EVRY 8 HRS,  PO
     Route: 048
     Dates: start: 20070714, end: 20070726
  4. HALDOL [Suspect]
     Indication: HALLUCINATION
     Dosage: 1 TAB EVRY 8 HRS,  PO
     Route: 048
     Dates: start: 20070714, end: 20070726
  5. SEROQUEL [Suspect]
     Indication: AGITATION
     Dosage: 1 TAB BEDTIME PO
     Route: 048
     Dates: start: 20070714, end: 20070726
  6. SEROQUEL [Suspect]
     Indication: HALLUCINATION
     Dosage: 1 TAB BEDTIME PO
     Route: 048
     Dates: start: 20070714, end: 20070726

REACTIONS (11)
  - CARDIAC FAILURE [None]
  - COMA [None]
  - CONFUSIONAL STATE [None]
  - DELUSION [None]
  - FEELING ABNORMAL [None]
  - HALLUCINATION [None]
  - HEART RATE ABNORMAL [None]
  - OVERDOSE [None]
  - RESPIRATORY ARREST [None]
  - SPEECH DISORDER [None]
  - UNRESPONSIVE TO STIMULI [None]
